FAERS Safety Report 5035086-7 (Version None)
Quarter: 2006Q2

REPORT INFORMATION
  Report Type: 
  Country: None (occurrence: None)
  Receive Date: 20060627
  Receipt Date: 20060619
  Transmission Date: 20061013
  Serious: Yes (Hospitalization)
  Sender: FDA-Public Use
  Company Number: FR-BRISTOL-MYERS SQUIBB COMPANY-13418504

PATIENT
  Age: 79 Year
  Sex: Female

DRUGS (6)
  1. APROVEL TABS 300 MG [Suspect]
     Route: 048
  2. SOTALEX TABS 80 MG [Suspect]
  3. ZESTRIL [Suspect]
  4. LASILIX [Suspect]
  5. ALDACTAZIDE [Suspect]
  6. LIPANTHYL [Concomitant]

REACTIONS (4)
  - DIARRHOEA [None]
  - POLLAKIURIA [None]
  - RENAL FAILURE ACUTE [None]
  - WEIGHT DECREASED [None]
